FAERS Safety Report 6259312-1 (Version None)
Quarter: 2009Q3

REPORT INFORMATION
  Report Type: 
  Country: None (occurrence: None)
  Receive Date: 20090702
  Receipt Date: 20090617
  Transmission Date: 20100115
  Serious: Yes (Hospitalization)
  Sender: FDA-Public Use
  Company Number: 001067

PATIENT
  Age: 50 Year
  Sex: Male

DRUGS (16)
  1. LACOSAMIDE [Suspect]
     Indication: EPILEPSY
     Dosage: 400 MG BID TABLET ORAL
     Route: 048
     Dates: start: 20030331
  2. PHENYTOIN [Concomitant]
  3. TOPIRAMATE [Concomitant]
  4. ACETAMINOPHEN [Concomitant]
  5. BISACODYL (BISACODYL) [Concomitant]
  6. LEVOCARNITINE (LEVOCARNITINE) [Concomitant]
  7. CALCITROL /00508501/ (CALCITROL /00508501) [Concomitant]
  8. TERAZOSIN HCL [Concomitant]
  9. POTASSIUM (POTASSIUM) [Concomitant]
  10. ALBUTEROL /00139501/ (SALBUTAMOL) [Concomitant]
  11. IPRATROPIUM BROMIDE [Concomitant]
  12. DOXYCYCLINE (DOXYCYCLINE) [Concomitant]
  13. FUROSEMIDE [Concomitant]
  14. SPIRONOLACTONE [Concomitant]
  15. OMEPRAZOLE [Concomitant]
  16. NIZORAL [Concomitant]

REACTIONS (2)
  - CONVULSION [None]
  - PNEUMONIA [None]
